FAERS Safety Report 8580892-5 (Version None)
Quarter: 2012Q3

REPORT INFORMATION
  Report Type: 
  Country: None (occurrence: None)
  Receive Date: 20120809
  Receipt Date: 20120801
  Transmission Date: 20120928
  Serious: Yes (Other)
  Sender: FDA-Public Use
  Company Number: US-BAYER-201040490NA

PATIENT
  Age: 28 Year
  Sex: Female

DRUGS (3)
  1. BACTRIM DS [Concomitant]
  2. YAZ [Suspect]
     Dosage: UNK UNK, QD
     Route: 048
     Dates: start: 20100501, end: 20101104
  3. KEFLEX [Concomitant]

REACTIONS (3)
  - CHOLECYSTECTOMY [None]
  - PULMONARY EMBOLISM [None]
  - DEEP VEIN THROMBOSIS [None]
